FAERS Safety Report 6519261-8 (Version None)
Quarter: 2009Q4

REPORT INFORMATION
  Report Type: 
  Country: None (occurrence: None)
  Receive Date: 20091228
  Receipt Date: 20091217
  Transmission Date: 20100525
  Serious: Yes (Hospitalization)
  Sender: FDA-Public Use
  Company Number: PHEH2009US15981

PATIENT
  Sex: Male

DRUGS (4)
  1. EXJADE [Suspect]
     Indication: IRON METABOLISM DISORDER
     Dosage: 1000 MG, QD
     Route: 048
  2. TRANSFUSIONS [Concomitant]
  3. COUMADIN [Concomitant]
     Indication: DEEP VEIN THROMBOSIS
     Dosage: 200 G, UNK
     Route: 048
  4. INDERAL [Concomitant]
     Indication: PORTAL HYPERTENSION
     Dosage: UNK
     Route: 048
     Dates: start: 20070601

REACTIONS (3)
  - CELLULITIS [None]
  - LIVER DISORDER [None]
  - WHITE BLOOD CELL COUNT DECREASED [None]
